FAERS Safety Report 20792221 (Version 1)
Quarter: 2022Q2

REPORT INFORMATION
  Report Type: Spontaneous
  Country: US (occurrence: US)
  Receive Date: 20220505
  Receipt Date: 20220505
  Transmission Date: 20220720
  Serious: Yes (Other)
  Sender: FDA-Public Use
  Company Number: US-ALLERGAN-2211454US

PATIENT
  Sex: Female

DRUGS (7)
  1. CARAFATE [Suspect]
     Active Substance: SUCRALFATE
     Indication: Product used for unknown indication
     Dosage: UNK UNK, BID
     Dates: end: 20220428
  2. CARAFATE [Suspect]
     Active Substance: SUCRALFATE
     Dosage: UNK UNK, QID
  3. OMEPRAZOLE [Suspect]
     Active Substance: OMEPRAZOLE
     Indication: Product used for unknown indication
     Dosage: UNK, QID
  4. XANAX [Concomitant]
     Active Substance: ALPRAZOLAM
  5. ZOFRAN [Concomitant]
     Active Substance: ONDANSETRON HYDROCHLORIDE
  6. PEPCID [Concomitant]
     Active Substance: FAMOTIDINE
  7. PEPPERMINT OIL [Concomitant]
     Active Substance: PEPPERMINT OIL

REACTIONS (18)
  - Spinal operation [Unknown]
  - Overdose [Unknown]
  - Loss of control of legs [Unknown]
  - Gait inability [Unknown]
  - Gastrooesophageal reflux disease [Unknown]
  - Gastritis [Unknown]
  - COVID-19 [Unknown]
  - Feeling abnormal [Unknown]
  - Condition aggravated [Unknown]
  - Tremor [Unknown]
  - Nervousness [Unknown]
  - Burning sensation [Unknown]
  - Hyperhidrosis [Unknown]
  - Malaise [Unknown]
  - Insomnia [Unknown]
  - Dyspepsia [Recovered/Resolved]
  - Nausea [Unknown]
  - Abdominal discomfort [Unknown]
